FAERS Safety Report 4976254-X (Version None)
Quarter: 2006Q2

REPORT INFORMATION
  Report Type: 
  Country: None (occurrence: None)
  Receive Date: 20060412
  Receipt Date: 20060403
  Transmission Date: 20061013
  Serious: Yes (Other)
  Sender: FDA-Public Use
  Company Number: 223704

PATIENT
  Age: 30 Year
  Sex: Female
  Weight: 45 kg

DRUGS (14)
  1. RITUXAN [Suspect]
     Indication: NON-HODGKIN'S LYMPHOMA
     Dosage: 600 MG, INTRAVENOUS
     Route: 042
     Dates: start: 20040625
  2. DOXORUBICIN HYDROCHLORIDE [Suspect]
     Indication: NON-HODGKIN'S LYMPHOMA
     Dosage: SEE IMAGE
     Route: 042
     Dates: start: 20040817
  3. DOXORUBICIN HYDROCHLORIDE [Suspect]
     Indication: NON-HODGKIN'S LYMPHOMA
     Dosage: SEE IMAGE
     Route: 042
     Dates: start: 20050725
  4. ENDOXAN                          (CYCLOPHOSPHAMIDE) [Suspect]
     Indication: NON-HODGKIN'S LYMPHOMA
     Dosage: SEE IMAGE
     Route: 042
     Dates: start: 20040625
  5. ENDOXAN                          (CYCLOPHOSPHAMIDE) [Suspect]
     Indication: NON-HODGKIN'S LYMPHOMA
     Dosage: SEE IMAGE
     Route: 042
     Dates: start: 20040914
  6. ONCOVIN [Suspect]
     Indication: NON-HODGKIN'S LYMPHOMA
     Dosage: 2 MG, INTRAVENOUS
     Route: 042
     Dates: start: 20040625
  7. PREDONINE (PREDNISOLONE, PREDNISOLONE ACETATE, PREDNISOLONE SODIUM SUC [Suspect]
     Indication: NON-HODGKIN'S LYMPHOMA
     Dosage: SEE IMAGE
     Route: 048
     Dates: start: 20040625
  8. PREDONINE (PREDNISOLONE, PREDNISOLONE ACETATE, PREDNISOLONE SODIUM SUC [Suspect]
     Indication: NON-HODGKIN'S LYMPHOMA
     Dosage: SEE IMAGE
     Route: 048
     Dates: start: 20041027
  9. METHOTREXATE [Suspect]
     Indication: NON-HODGKIN'S LYMPHOMA
     Dosage: SEE IMAGE
     Route: 042
     Dates: start: 20041027
  10. CYTARABINE [Suspect]
     Indication: NON-HODGKIN'S LYMPHOMA
     Dosage: 3.1 MG, INTRAVENOUS
     Route: 042
     Dates: start: 20041027
  11. RADIOTHERAPY (RADIATION THERAPY) [Suspect]
     Indication: NON-HODGKIN'S LYMPHOMA
     Dosage: 34 GY
     Dates: start: 20041012, end: 20041028
  12. LOXONIN (LOXOPROFEN SODIUM) [Concomitant]
  13. VOLTAREN [Concomitant]
  14. POLARAMINE [Concomitant]

REACTIONS (2)
  - PLATELET COUNT DECREASED [None]
  - WHITE BLOOD CELL COUNT DECREASED [None]
